FAERS Safety Report 10211308 (Version 1)
Quarter: 2014Q2

REPORT INFORMATION
  Report Type: Spontaneous
  Country: DE (occurrence: None)
  Receive Date: 20140528
  Receipt Date: 20140528
  Transmission Date: 20141212
  Serious: Yes (Other)
  Sender: FDA-Public Use
  Company Number: AUR-APL-2014-06083

PATIENT
  Age: 30 Year
  Sex: Female

DRUGS (2)
  1. SERTRALINE (SERTRALINE) [Suspect]
     Indication: BIPOLAR DISORDER
     Route: 048
     Dates: start: 20130304, end: 20130810
  2. SEROQUEL PROLONG [Suspect]
     Indication: BIPOLAR DISORDER
     Dosage: 150-50MG/DAY, ORAL
     Route: 048
     Dates: start: 20121213, end: 20130810

REACTIONS (7)
  - Glucose tolerance impaired [None]
  - Placental insufficiency [None]
  - Foetal death [None]
  - Placental infarction [None]
  - Induced labour [None]
  - Foetal growth restriction [None]
  - Exposure during pregnancy [None]
